FAERS Safety Report 19095984 (Version 1)
Quarter: 2021Q2

REPORT INFORMATION
  Report Type: Spontaneous
  Country: US (occurrence: US)
  Receive Date: 20210406
  Receipt Date: 20210406
  Transmission Date: 20210717
  Serious: Yes (Hospitalization, Other)
  Sender: FDA-Public Use
  Company Number: US-JAZZ-2021-US-005510

PATIENT
  Sex: Male

DRUGS (1)
  1. ZEPZELCA [Suspect]
     Active Substance: LURBINECTEDIN
     Indication: SMALL CELL LUNG CANCER
     Dosage: 1 CYCLE

REACTIONS (6)
  - Hepatic lesion [Unknown]
  - Neutropenia [Unknown]
  - Dyspnoea [Unknown]
  - Asthenia [Unknown]
  - Pneumonia [Unknown]
  - Platelet count decreased [Recovering/Resolving]
